FAERS Safety Report 14477099 (Version 1)
Quarter: 2018Q1

REPORT INFORMATION
  Report Type: Spontaneous
  Country: US (occurrence: US)
  Receive Date: 20180201
  Receipt Date: 20180201
  Transmission Date: 20180509
  Serious: No
  Sender: FDA-Public Use
  Company Number: US-EXELIXIS-CABO-17008239

PATIENT
  Sex: Female

DRUGS (9)
  1. COMETRIQ [Suspect]
     Active Substance: CABOZANTINIB S-MALATE
     Indication: RENAL CELL CARCINOMA
     Dosage: UNK MG, QD, 3 PILLS
     Route: 048
     Dates: start: 2013
  2. LANTUS [Concomitant]
     Active Substance: INSULIN GLARGINE
  3. ZOFRAN [Concomitant]
     Active Substance: ONDANSETRON HYDROCHLORIDE
  4. SENNA [Concomitant]
     Active Substance: SENNA LEAF\SENNOSIDES\SENNOSIDES A AND B
  5. MIRALAX [Concomitant]
     Active Substance: POLYETHYLENE GLYCOL 3350
  6. PREDNISONE. [Concomitant]
     Active Substance: PREDNISONE
  7. HUMALOG [Concomitant]
     Active Substance: INSULIN LISPRO
  8. ALLOPURINOL. [Concomitant]
     Active Substance: ALLOPURINOL
  9. LEVOTHYROXINE. [Concomitant]
     Active Substance: LEVOTHYROXINE

REACTIONS (8)
  - Asthenia [Recovered/Resolved]
  - Weight decreased [Unknown]
  - Memory impairment [Not Recovered/Not Resolved]
  - Hair texture abnormal [Not Recovered/Not Resolved]
  - Oedema peripheral [Recovered/Resolved]
  - Off label use [Unknown]
  - Hair colour changes [Not Recovered/Not Resolved]
  - Anxiety [Unknown]
